FAERS Safety Report 25190448 (Version 1)
Quarter: 2025Q2

REPORT INFORMATION
  Report Type: Spontaneous
  Country: US (occurrence: US)
  Receive Date: 20250411
  Receipt Date: 20250411
  Transmission Date: 20250717
  Serious: No
  Sender: JOHNSON AND JOHNSON
  Company Number: US-JNJFOC-20250387275

PATIENT
  Age: 58 Year
  Sex: Female

DRUGS (2)
  1. SIMPONI ARIA [Suspect]
     Active Substance: GOLIMUMAB
     Indication: Psoriatic arthropathy
     Route: 041
     Dates: start: 20240729
  2. SIMPONI ARIA [Suspect]
     Active Substance: GOLIMUMAB
     Indication: Gout

REACTIONS (4)
  - Absence of immediate treatment response [Unknown]
  - Pain in extremity [Unknown]
  - Swelling [Recovering/Resolving]
  - Product dose omission issue [Unknown]

NARRATIVE: CASE EVENT DATE: 20250301
